FAERS Safety Report 7325203-8 (Version None)
Quarter: 2011Q1

REPORT INFORMATION
  Report Type: 
  Country: None (occurrence: None)
  Receive Date: 20110302
  Receipt Date: 20110222
  Transmission Date: 20110831
  Serious: Yes (Other)
  Sender: FDA-Public Use
  Company Number: US-US-EMD SERONO, INC.-7041868

PATIENT
  Sex: Female

DRUGS (4)
  1. BACLOFEN [Concomitant]
     Indication: MUSCLE SPASMS
  2. REBIF [Suspect]
     Indication: MULTIPLE SCLEROSIS
     Dates: start: 20020926, end: 20091019
  3. REBIF [Suspect]
     Route: 058
     Dates: start: 20100806, end: 20101101
  4. ZANAFLEX [Concomitant]
     Indication: MUSCLE SPASMS

REACTIONS (6)
  - FALL [None]
  - INJECTION SITE REACTION [None]
  - TIBIA FRACTURE [None]
  - VISION BLURRED [None]
  - MUSCLE SPASMS [None]
  - INFLUENZA LIKE ILLNESS [None]
